FAERS Safety Report 12197755 (Version 1)
Quarter: 2016Q1

REPORT INFORMATION
  Report Type: Spontaneous
  Country: US (occurrence: None)
  Receive Date: 20160321
  Receipt Date: 20160321
  Transmission Date: 20160526
  Serious: Yes (Death)
  Sender: FDA-Public Use
  Company Number: None

PATIENT
  Age: 18 Year
  Sex: Female
  Weight: 130 kg

DRUGS (2)
  1. PENICLLIN [Concomitant]
  2. PROMACTA [Suspect]
     Active Substance: ELTROMBOPAG OLAMINE
     Indication: IMMUNE THROMBOCYTOPENIC PURPURA
     Route: 048
     Dates: start: 20160229, end: 20160311

REACTIONS (5)
  - Cerebral infarction [None]
  - Cerebral venous thrombosis [None]
  - Brain stem syndrome [None]
  - Multiple sclerosis [None]
  - Pupil fixed [None]

NARRATIVE: CASE EVENT DATE: 20160310
